FAERS Safety Report 14933825 (Version 1)
Quarter: 2018Q2

REPORT INFORMATION
  Report Type: Spontaneous
  Country: US (occurrence: US)
  Receive Date: 20180524
  Receipt Date: 20180524
  Transmission Date: 20180711
  Serious: No
  Sender: FDA-Public Use
  Company Number: US-SHIRE-US201819696

PATIENT
  Age: 38 Year
  Sex: Female

DRUGS (3)
  1. XIIDRA [Suspect]
     Active Substance: LIFITEGRAST
     Indication: FOREIGN BODY SENSATION IN EYES
  2. XIIDRA [Suspect]
     Active Substance: LIFITEGRAST
     Indication: DRY EYE
     Dosage: UNK
     Route: 047
     Dates: start: 20180516
  3. XIIDRA [Suspect]
     Active Substance: LIFITEGRAST
     Indication: EYE PAIN

REACTIONS (3)
  - Affect lability [Unknown]
  - Wrong technique in product usage process [Unknown]
  - Instillation site burn [Unknown]
